FAERS Safety Report 6749475-3 (Version None)
Quarter: 2010Q2

REPORT INFORMATION
  Report Type: 
  Country: None (occurrence: None)
  Receive Date: 20100601
  Receipt Date: 20100524
  Transmission Date: 20101027
  Serious: Yes (Hospitalization)
  Sender: FDA-Public Use
  Company Number: US-ROCHE-706073

PATIENT
  Sex: Female

DRUGS (3)
  1. BEVACIZUMAB [Suspect]
     Dosage: LAST PROTOCOL TREATMENT DATE REPORTED AS 25 JAN 2010.
     Route: 065
     Dates: start: 20091111
  2. CISPLATIN [Suspect]
     Dosage: LAST  PROTOCOL TREATMENT DATE: 25 JAN 2010
     Route: 065
     Dates: start: 20091111
  3. IRINOTECAN [Suspect]
     Dosage: LAST PROTOCOL TREATMENT DATE: 25 JAN 2010
     Route: 065
     Dates: start: 20091111

REACTIONS (2)
  - DEHYDRATION [None]
  - OESOPHAGITIS [None]
